FAERS Safety Report 6160939-6 (Version None)
Quarter: 2009Q2

REPORT INFORMATION
  Report Type: 
  Country: None (occurrence: None)
  Receive Date: 20090417
  Receipt Date: 20090417
  Transmission Date: 20091009
  Serious: Yes (Other)
  Sender: FDA-Public Use
  Company Number: None

PATIENT
  Sex: Female
  Weight: 68.0396 kg

DRUGS (1)
  1. AMLODIPINE [Suspect]
     Indication: ARTERIOSPASM CORONARY
     Dosage: 5MG 1 QD AM ORAL
     Route: 048
     Dates: start: 20081202, end: 20090320

REACTIONS (1)
  - GINGIVITIS [None]
